FAERS Safety Report 10890296 (Version 2)
Quarter: 2015Q2

REPORT INFORMATION
  Report Type: Spontaneous
  Country: US (occurrence: US)
  Receive Date: 20150304
  Receipt Date: 20150608
  Transmission Date: 20150821
  Serious: Yes (Hospitalization)
  Sender: FDA-Public Use
  Company Number: US-HORIZON-ACT-0036-2015

PATIENT
  Age: 22 Year
  Sex: Male

DRUGS (1)
  1. ACTIMMUNE [Suspect]
     Active Substance: INTERFERON GAMMA-1B
     Indication: CHRONIC GRANULOMATOUS DISEASE
     Dates: end: 201501

REACTIONS (6)
  - Asthenia [Unknown]
  - Treatment noncompliance [Unknown]
  - Photosensitivity reaction [Unknown]
  - Arthropathy [Unknown]
  - Unevaluable event [Recovered/Resolved]
  - Eye ulcer [Unknown]

NARRATIVE: CASE EVENT DATE: 201408
